FAERS Safety Report 23758237 (Version 1)
Quarter: 2024Q2

REPORT INFORMATION
  Report Type: Report from Study
  Country: US (occurrence: US)
  Receive Date: 20240418
  Receipt Date: 20240418
  Transmission Date: 20240715
  Serious: Yes (Death, Hospitalization)
  Sender: FDA-Public Use
  Company Number: US-Eisai-EC-2024-163445

PATIENT
  Age: 62 Year
  Sex: Male

DRUGS (7)
  1. LENVIMA [Suspect]
     Active Substance: LENVATINIB
     Indication: Renal cancer
     Route: 048
     Dates: end: 20240404
  2. EVEROLIMUS [Concomitant]
     Active Substance: EVEROLIMUS
     Dosage: FREQUENCY UNKNOWN
  3. ATORVASTATIN [Concomitant]
     Active Substance: ATORVASTATIN
     Indication: Hyperlipidaemia
     Dosage: DOSE AND FREQUENCY UNKNOWN
     Dates: start: 20201019, end: 20240407
  4. FLONASE [Concomitant]
     Active Substance: FLUTICASONE PROPIONATE
     Dosage: DOSE AND FREQUENCY UNKNOWN
     Dates: start: 20240327, end: 20240407
  5. ADVAIR HFA [Concomitant]
     Active Substance: FLUTICASONE PROPIONATE\SALMETEROL XINAFOATE
     Indication: Asthma
     Dosage: DOSE AND FREQUENCY UNKNOWN
     Dates: start: 20210928, end: 20240407
  6. MELATONIN [Concomitant]
     Active Substance: MELATONIN
     Indication: Insomnia
     Dosage: DOSE AND FREQUENCY UNKNOWN
     Dates: start: 20240327, end: 20240407
  7. VITAMINS [Concomitant]
     Active Substance: VITAMINS
     Dosage: DOSE AND FREQUENCY UNKNOWN
     Dates: start: 20240308, end: 20240407

REACTIONS (8)
  - Syncope [Fatal]
  - Acute kidney injury [Fatal]
  - Shock [Fatal]
  - Malignant neoplasm progression [Fatal]
  - Ascites [Recovering/Resolving]
  - Head injury [Unknown]
  - Hyponatraemia [Unknown]
  - Hypotension [Unknown]

NARRATIVE: CASE EVENT DATE: 20240327
